FAERS Safety Report 9709973 (Version 1)
Quarter: 2013Q4

REPORT INFORMATION
  Report Type: Spontaneous
  Country: GB (occurrence: GB)
  Receive Date: 20131126
  Receipt Date: 20131126
  Transmission Date: 20140711
  Serious: Yes (Other)
  Sender: FDA-Public Use
  Company Number: PHHY2013GB133622

PATIENT
  Age: 53 Year
  Sex: Female
  Weight: 58.96 kg

DRUGS (3)
  1. CLINDAMYCIN [Suspect]
     Indication: CELLULITIS
     Dosage: 450 MG, QID
     Route: 048
     Dates: start: 20130919, end: 20130925
  2. MIRENA [Concomitant]
  3. ESTRADOT [Concomitant]
     Indication: HORMONE REPLACEMENT THERAPY

REACTIONS (3)
  - Irritable bowel syndrome [Unknown]
  - Diarrhoea [Unknown]
  - Clostridium difficile infection [Recovered/Resolved with Sequelae]
